FAERS Safety Report 22532598 (Version 1)
Quarter: 2023Q2

REPORT INFORMATION
  Report Type: Spontaneous
  Country: GR (occurrence: GR)
  Receive Date: 20230607
  Receipt Date: 20230607
  Transmission Date: 20230721
  Serious: Yes (Hospitalization, Other)
  Sender: FDA-Public Use
  Company Number: GR-002147023-NVSC2019GR040454

PATIENT
  Age: 47 Year
  Sex: Male

DRUGS (4)
  1. INFLIXIMAB [Suspect]
     Active Substance: INFLIXIMAB
     Indication: Rheumatoid arthritis
     Dosage: UNK
     Route: 065
  2. INFLIXIMAB [Suspect]
     Active Substance: INFLIXIMAB
     Indication: Immunosuppression
  3. METHOTREXATE [Suspect]
     Active Substance: METHOTREXATE
     Indication: Rheumatoid arthritis
     Dosage: UNK
     Route: 065
  4. METHOTREXATE [Suspect]
     Active Substance: METHOTREXATE
     Indication: Immunosuppression

REACTIONS (12)
  - Pyrexia [Recovered/Resolved]
  - Hyperhidrosis [Recovered/Resolved]
  - Headache [Recovering/Resolving]
  - Myalgia [Recovering/Resolving]
  - Visceral leishmaniasis [Recovering/Resolving]
  - Coagulation time prolonged [Unknown]
  - Hypofibrinogenaemia [Unknown]
  - Hepatomegaly [Recovering/Resolving]
  - Haematocrit decreased [Unknown]
  - Inflammation [Unknown]
  - Platelet count decreased [Unknown]
  - Hepatosplenomegaly [Recovering/Resolving]
